FAERS Safety Report 8160525-2 (Version None)
Quarter: 2012Q1

REPORT INFORMATION
  Report Type: 
  Country: None (occurrence: None)
  Receive Date: 20120223
  Receipt Date: 20120215
  Transmission Date: 20120608
  Serious: Yes (Other)
  Sender: FDA-Public Use
  Company Number: DE-ASTRAZENECA-2012SE06230

PATIENT
  Age: 21 Year
  Sex: Female

DRUGS (4)
  1. LORAZEPAM [Concomitant]
     Indication: SCHIZOPHRENIA, PARANOID TYPE
     Route: 048
     Dates: start: 20111201
  2. ERGENYL CHRONO [Concomitant]
     Indication: SCHIZOPHRENIA, PARANOID TYPE
     Route: 048
  3. SEROQUEL XR [Suspect]
     Indication: SCHIZOPHRENIA, PARANOID TYPE
     Route: 048
     Dates: start: 20120116
  4. ABILIFY [Concomitant]
     Indication: SCHIZOPHRENIA, PARANOID TYPE
     Route: 048

REACTIONS (3)
  - THROMBOCYTOPENIA [None]
  - ELECTROCARDIOGRAM T WAVE INVERSION [None]
  - TROPONIN T INCREASED [None]
